FAERS Safety Report 8059075-3 (Version None)
Quarter: 2012Q1

REPORT INFORMATION
  Report Type: 
  Country: None (occurrence: None)
  Receive Date: 20120119
  Receipt Date: 20120119
  Transmission Date: 20120608
  Serious: Yes (Other)
  Sender: FDA-Public Use
  Company Number: None

PATIENT
  Age: 34 Year
  Sex: Male
  Weight: 78.4723 kg

DRUGS (1)
  1. HYDROCODONE BITARTRATE + ACETAMINOPHEN [Suspect]
     Indication: CORNEAL ABRASION
     Dosage: ONE TABLET ONCE ORAL
     Route: 048
     Dates: start: 20111126

REACTIONS (2)
  - DIZZINESS [None]
  - NAUSEA [None]
